FAERS Safety Report 25029124 (Version 2)
Quarter: 2025Q1

REPORT INFORMATION
  Report Type: Spontaneous
  Country: GB (occurrence: GB)
  Receive Date: 20250303
  Receipt Date: 20250318
  Transmission Date: 20250408
  Serious: Yes (Disabling, Other)
  Sender: BOEHRINGER INGELHEIM
  Company Number: None

PATIENT
  Age: 44 Year
  Sex: Male
  Weight: 73 kg

DRUGS (2)
  1. PRAMIPEXOLE [Suspect]
     Active Substance: PRAMIPEXOLE
     Indication: Restless legs syndrome
     Dosage: 0.88MG TABLET
     Dates: start: 20040601, end: 20210601
  2. I was taken off Pramipexole and given codeine for a week. Then back on [Concomitant]
     Indication: Product used for unknown indication

REACTIONS (6)
  - Restless leg augmentation syndrome [Recovered/Resolved with Sequelae]
  - Mental impairment [Unknown]
  - Dopamine agonist withdrawal syndrome [Unknown]
  - Medication error [Unknown]
  - Emotional disorder [Unknown]
  - Impulse-control disorder [Unknown]

NARRATIVE: CASE EVENT DATE: 20070701
